FAERS Safety Report 23576508 (Version 2)
Quarter: 2024Q1

REPORT INFORMATION
  Report Type: Spontaneous
  Country: US (occurrence: None)
  Receive Date: 20240228
  Receipt Date: 20240320
  Transmission Date: 20240409
  Serious: Yes (Death, Life-Threatening, Hospitalization, Other)
  Sender: FDA-Public Use
  Company Number: 2024A043030

PATIENT
  Age: 79 Year
  Sex: Female
  Weight: 72.6 kg

DRUGS (2)
  1. TAGRISSO [Suspect]
     Active Substance: OSIMERTINIB
     Indication: Lung neoplasm malignant
     Route: 048
     Dates: start: 20230401, end: 20240303
  2. TAGRISSO [Suspect]
     Active Substance: OSIMERTINIB
     Indication: Lung neoplasm malignant
     Route: 048
     Dates: start: 20240220

REACTIONS (29)
  - Death [Fatal]
  - Hypophagia [Unknown]
  - Dysphagia [Unknown]
  - Odynophagia [Unknown]
  - Pneumonia aspiration [Unknown]
  - Malignant neoplasm progression [Unknown]
  - Metastases to peritoneum [Unknown]
  - Hepatic lesion [Unknown]
  - Bile duct stenosis [Unknown]
  - Metastases to bone [Unknown]
  - Breast cyst [Unknown]
  - Breast mass [Unknown]
  - Electrocardiogram QT prolonged [Recovered/Resolved]
  - Vomiting [Unknown]
  - Neoplasm malignant [Unknown]
  - Atrial fibrillation [Recovered/Resolved]
  - Malignant pleural effusion [Unknown]
  - Thrombosis [Unknown]
  - Pneumothorax [Unknown]
  - Abdominal distension [Unknown]
  - Cough [Unknown]
  - Heart rate increased [Unknown]
  - Drug interaction [Unknown]
  - Clostridium difficile infection [Unknown]
  - Infection [Unknown]
  - Telangiectasia [Unknown]
  - Therapeutic product effect decreased [Unknown]
  - Flatulence [Unknown]
  - Drug ineffective [Unknown]

NARRATIVE: CASE EVENT DATE: 20231001
